FAERS Safety Report 9174332 (Version 1)
Quarter: 2013Q1

REPORT INFORMATION
  Report Type: Spontaneous
  Country: US (occurrence: None)
  Receive Date: 20130318
  Receipt Date: 20130318
  Transmission Date: 20140127
  Serious: Yes (Hospitalization, Other)
  Sender: FDA-Public Use
  Company Number: None

PATIENT
  Sex: Female
  Weight: 82 kg

DRUGS (2)
  1. NEUTROGENA NATURALS PURIFYING FACIAL CLEANSER [Suspect]
     Dosage: PEA SIZE
     Route: 061
     Dates: start: 20130226, end: 20130228
  2. CELEXA [Concomitant]

REACTIONS (2)
  - Chemical injury [None]
  - Swelling face [None]
